FAERS Safety Report 4750914-8 (Version None)
Quarter: 2005Q3

REPORT INFORMATION
  Report Type: 
  Country: None (occurrence: None)
  Receive Date: 20050818
  Receipt Date: 20050809
  Transmission Date: 20060218
  Serious: Yes (Hospitalization)
  Sender: FDA-Public Use
  Company Number: ZICO001264

PATIENT
  Age: 51 Year
  Sex: Female

DRUGS (2)
  1. PRIALT [Suspect]
     Dosage: 0.025 MCG/HR INTRATHECAL
     Route: 037
     Dates: start: 20050101, end: 20050706
  2. FENTANYL [Concomitant]

REACTIONS (12)
  - ABDOMINAL SYMPTOM [None]
  - ANOREXIA [None]
  - BURNING SENSATION [None]
  - DYSGEUSIA [None]
  - GASTROINTESTINAL INFLAMMATION [None]
  - MALNUTRITION [None]
  - MOUTH ULCERATION [None]
  - MUCOSAL INFLAMMATION [None]
  - NAUSEA [None]
  - PULMONARY EMBOLISM [None]
  - SKIN EXFOLIATION [None]
  - VOMITING [None]
